FAERS Safety Report 7833858-4 (Version None)
Quarter: 2011Q4

REPORT INFORMATION
  Report Type: 
  Country: None (occurrence: None)
  Receive Date: 20111024
  Receipt Date: 20111017
  Transmission Date: 20120403
  Serious: Yes (Hospitalization)
  Sender: FDA-Public Use
  Company Number: CH-GLAXOSMITHKLINE-B0757590A

PATIENT
  Age: 19 Year
  Sex: Female

DRUGS (3)
  1. TROBALT [Suspect]
     Indication: PARTIAL SEIZURES
     Dosage: 400MG PER DAY
     Route: 048
     Dates: start: 20110914, end: 20111010
  2. TRILEPTAL [Concomitant]
     Indication: EPILEPSY
     Route: 048
  3. LAMOTRIGINE [Concomitant]
     Indication: EPILEPSY
     Route: 048

REACTIONS (5)
  - SUICIDAL IDEATION [None]
  - MAJOR DEPRESSION [None]
  - SOMNOLENCE [None]
  - SUICIDE ATTEMPT [None]
  - HALLUCINATION [None]
